FAERS Safety Report 6541807-4 (Version None)
Quarter: 2010Q1

REPORT INFORMATION
  Report Type: 
  Country: None (occurrence: None)
  Receive Date: 20100119
  Receipt Date: 20100109
  Transmission Date: 20100710
  Serious: Yes (Other)
  Sender: FDA-Public Use
  Company Number: PHHY2010BR01286

PATIENT
  Age: 27 Year
  Sex: Male

DRUGS (1)
  1. TRILEPTAL [Suspect]

REACTIONS (2)
  - NAUSEA [None]
  - SUICIDE ATTEMPT [None]
